FAERS Safety Report 7654733-4 (Version None)
Quarter: 2011Q3

REPORT INFORMATION
  Report Type: 
  Country: None (occurrence: None)
  Receive Date: 20110804
  Receipt Date: 20110725
  Transmission Date: 20111222
  Serious: No
  Sender: FDA-Public Use
  Company Number: US-BIOGENIDEC-2011BI003017

PATIENT
  Age: 50 Year
  Sex: Female

DRUGS (1)
  1. TYSABRI [Suspect]
     Indication: MULTIPLE SCLEROSIS
     Route: 042
     Dates: start: 20100615

REACTIONS (11)
  - DEPRESSION [None]
  - MENOPAUSAL SYMPTOMS [None]
  - BONE PAIN [None]
  - CONFUSIONAL STATE [None]
  - BURNOUT SYNDROME [None]
  - GENERAL SYMPTOM [None]
  - MENTAL IMPAIRMENT [None]
  - OPTIC NEURITIS [None]
  - MEMORY IMPAIRMENT [None]
  - APATHY [None]
  - DISTURBANCE IN ATTENTION [None]
